FAERS Safety Report 6462003-5 (Version None)
Quarter: 2009Q4

REPORT INFORMATION
  Report Type: 
  Country: None (occurrence: None)
  Receive Date: 20091130
  Receipt Date: 20091119
  Transmission Date: 20100525
  Serious: Yes (Other)
  Sender: FDA-Public Use
  Company Number: FR-ASTRAZENECA-2009SE28169

PATIENT
  Age: 64 Year
  Sex: Female

DRUGS (3)
  1. NEXIUM [Suspect]
     Route: 048
  2. PLAVIX [Interacting]
  3. KARDEGIC [Concomitant]

REACTIONS (2)
  - DEVICE OCCLUSION [None]
  - DRUG INTERACTION [None]
